FAERS Safety Report 7647467-3 (Version None)
Quarter: 2011Q3

REPORT INFORMATION
  Report Type: 
  Country: None (occurrence: None)
  Receive Date: 20110801
  Receipt Date: 20110720
  Transmission Date: 20111222
  Serious: Yes (Hospitalization)
  Sender: FDA-Public Use
  Company Number: GB-ASTRAZENECA-2010SE42456

PATIENT
  Age: 34362 Day
  Sex: Female
  Weight: 55 kg

DRUGS (7)
  1. PLACEBO [Suspect]
     Indication: BREAST CANCER
     Dosage: DAILY
     Route: 048
  2. PLACEBO [Suspect]
     Indication: BREAST CANCER METASTATIC
     Dosage: DAILY
     Route: 048
  3. LETROZOLE [Concomitant]
     Indication: BENIGN ENDOCRINE NEOPLASM
  4. IBANDRONATE [Concomitant]
  5. FASLODEX [Suspect]
     Indication: BREAST CANCER METASTATIC
     Route: 030
     Dates: start: 20100708
  6. FASLODEX [Suspect]
     Indication: BREAST CANCER
     Route: 030
     Dates: start: 20100708
  7. RADIOTHERAPY [Concomitant]
     Indication: BREAST CANCER METASTATIC

REACTIONS (3)
  - HYPOKALAEMIA [None]
  - HYPOCALCAEMIA [None]
  - HEAD INJURY [None]
